FAERS Safety Report 14507365 (Version 1)
Quarter: 2018Q1

REPORT INFORMATION
  Report Type: Spontaneous
  Country: US (occurrence: US)
  Receive Date: 20180208
  Receipt Date: 20180208
  Transmission Date: 20180509
  Serious: No
  Sender: FDA-Public Use
  Company Number: US-PURDUE-USA-2017-0140671

PATIENT
  Age: 50 Year
  Sex: Female

DRUGS (1)
  1. BUTRANS [Suspect]
     Active Substance: BUPRENORPHINE
     Indication: NERVE INJURY
     Dosage: 20 MCG/HR, WEEKLY
     Route: 062
     Dates: start: 2016

REACTIONS (5)
  - Application site vesicles [Recovered/Resolved]
  - Application site pruritus [Not Recovered/Not Resolved]
  - Application site erosion [Recovered/Resolved]
  - Application site erythema [Not Recovered/Not Resolved]
  - Application site discharge [Recovered/Resolved]

NARRATIVE: CASE EVENT DATE: 20170820
